FAERS Safety Report 23466415 (Version 1)
Quarter: 2024Q1

REPORT INFORMATION
  Report Type: Spontaneous
  Country: JP (occurrence: JP)
  Receive Date: 20240201
  Receipt Date: 20240201
  Transmission Date: 20240409
  Serious: Yes (Other)
  Sender: FDA-Public Use
  Company Number: JP-ANIPHARMA-2024-JP-000023

PATIENT
  Age: 24 Year
  Sex: Male

DRUGS (1)
  1. ZONISAMIDE [Suspect]
     Active Substance: ZONISAMIDE
     Indication: Severe myoclonic epilepsy of infancy

REACTIONS (1)
  - Hyperthermia [Recovered/Resolved]
